FAERS Safety Report 6432156-3 (Version None)
Quarter: 2009Q4

REPORT INFORMATION
  Report Type: 
  Country: None (occurrence: None)
  Receive Date: 20091109
  Receipt Date: 20091102
  Transmission Date: 20100525
  Serious: Yes (Other)
  Sender: FDA-Public Use
  Company Number: TW-BRISTOL-MYERS SQUIBB COMPANY-14839864

PATIENT
  Age: 86 Year
  Sex: Male

DRUGS (2)
  1. WARFARIN SODIUM [Suspect]
     Indication: ANTICOAGULANT THERAPY
  2. ASPIRIN [Suspect]
     Indication: ANTICOAGULANT THERAPY

REACTIONS (3)
  - BLINDNESS UNILATERAL [None]
  - CHOROIDAL HAEMORRHAGE [None]
  - VITREOUS HAEMORRHAGE [None]
